FAERS Safety Report 9308213 (Version 3)
Quarter: 2013Q3

REPORT INFORMATION
  Report Type: Report from Study
  Country: CN (occurrence: CN)
  Receive Date: 20130524
  Receipt Date: 20130718
  Transmission Date: 20140515
  Serious: Yes (Hospitalization)
  Sender: FDA-Public Use
  Company Number: CN-PFIZER INC-2013154904

PATIENT
  Age: 56 Year
  Sex: Male
  Weight: 60 kg

DRUGS (8)
  1. AXITINIB [Suspect]
     Indication: METASTATIC RENAL CELL CARCINOMA
     Dosage: 5 MG, 2X/DAY
     Route: 048
     Dates: start: 20110130
  2. AXITINIB [Suspect]
     Dosage: 7 MG, 2X/DAY (STARTING FROM CYCLE 1 DAY 15)
     Route: 048
  3. AXITINIB [Suspect]
     Dosage: 10 MG, 2X/DAY (STARTING FROM CYCLE 13 DAY 1)
     Route: 048
  4. AXITINIB [Suspect]
     Dosage: 7 MG, 2X/DAY  (STARTING FROM CYCLE 17 DAY 1)
     Route: 048
  5. PAMIDRONATE DISODIUM [Concomitant]
     Indication: CANCER PAIN
     Dosage: 90 MG, MONTHLY
     Route: 042
     Dates: start: 20120131
  6. METRONIDAZOLE [Concomitant]
     Indication: TOOTHACHE
     Dosage: 0.4 G, 3X/DAY
     Route: 048
     Dates: start: 20120930
  7. HYZAAR [Concomitant]
     Indication: HYPERTENSION
     Dosage: 1 DF, 1X/DAY
     Route: 048
     Dates: start: 20120423
  8. TYLOX [Concomitant]
     Indication: PAIN
     Dosage: 2 DF, 2X/DAY
     Route: 048
     Dates: start: 20111113

REACTIONS (1)
  - Syncope [Recovered/Resolved]
